FAERS Safety Report 6656192-7 (Version None)
Quarter: 2010Q1

REPORT INFORMATION
  Report Type: 
  Country: None (occurrence: None)
  Receive Date: 20100329
  Receipt Date: 20100324
  Transmission Date: 20100710
  Serious: Yes (Death, Other)
  Sender: FDA-Public Use
  Company Number: GB-TEVA-228973ISR

PATIENT
  Age: 46 Year
  Sex: Male

DRUGS (4)
  1. CARBOPLATIN [Suspect]
     Indication: METASTATIC MALIGNANT MELANOMA
  2. NAPROXEN [Suspect]
     Indication: ANALGESIC THERAPY
  3. DEXAMETHASONE [Suspect]
     Indication: FATIGUE
  4. NULYTELY [Suspect]
     Indication: CONSTIPATION

REACTIONS (3)
  - HYPERKALAEMIA [None]
  - HYPONATRAEMIA [None]
  - TUMOUR HAEMORRHAGE [None]
